FAERS Safety Report 7466145-7 (Version None)
Quarter: 2011Q2

REPORT INFORMATION
  Report Type: 
  Country: None (occurrence: None)
  Receive Date: 20110509
  Receipt Date: 20110427
  Transmission Date: 20111010
  Serious: Yes (Hospitalization)
  Sender: FDA-Public Use
  Company Number: US-ROCHE-774292

PATIENT
  Sex: Male
  Weight: 64.8 kg

DRUGS (5)
  1. AVASTIN [Suspect]
     Indication: GLIOBLASTOMA MULTIFORME
     Dosage: OVER 30-90 MIN ON DAY 1 OF WKS 4 AND 6 CYCLE = 4 WEEKS: PATIENT COMPLETED CYCLE 3 DAY 1 ON 05/04/11.
     Route: 042
     Dates: start: 20101121
  2. CLONAZEPAM [Suspect]
     Route: 065
  3. QUETIAPINE [Suspect]
     Route: 065
  4. TEMOZOLOMIDE [Suspect]
     Indication: GLIOBLASTOMA MULTIFORME
     Dosage: ADJUVANT CYCLE 2 ON 03/27/2011 FOR 5 DAY CYCLE AT 280MG PER DAY.
     Route: 048
     Dates: start: 20101121
  5. PHENYTOIN [Suspect]
     Route: 065

REACTIONS (3)
  - DEPRESSION [None]
  - COGNITIVE DISORDER [None]
  - DIPLOPIA [None]
